FAERS Safety Report 16077740 (Version 5)
Quarter: 2019Q3

REPORT INFORMATION
  Report Type: Report from Study
  Country: None (occurrence: NL)
  Receive Date: 20190315
  Receipt Date: 20190903
  Transmission Date: 20191004
  Serious: Yes (Other)
  Sender: FDA-Public Use
  Company Number: NL-ABBVIE-16P-114-1768996-00

PATIENT
  Sex: Male
  Weight: 65 kg

DRUGS (7)
  1. DUODOPA [Suspect]
     Active Substance: CARBIDOPA\LEVODOPA
     Indication: PARKINSON^S DISEASE
     Dosage: MD: 12, CD: 2.4, ED: 1
     Route: 050
     Dates: start: 20161017
  2. DUODOPA [Suspect]
     Active Substance: CARBIDOPA\LEVODOPA
     Dosage: MD 11.5 ML, CD 2.6 ML/HR, ED 1.0 ML. THE PATIENT STILL USES 1 TO 2 EXTRA DOSES
     Route: 050
  3. LEVODOPA/CARBIDOPA RET [Concomitant]
     Indication: PARKINSON^S DISEASE
  4. DUODOPA [Suspect]
     Active Substance: CARBIDOPA\LEVODOPA
     Dosage: MD: 12.0, CD: 2.4, ED: 1.0
     Route: 050
  5. DUODOPA [Suspect]
     Active Substance: CARBIDOPA\LEVODOPA
     Dosage: BECAUSE OF BRADYKINESIA, RIGIDITY AND TREMORS THE MD: 11.5, CD: 2.8, ED: 1.0
     Route: 050
     Dates: start: 201811
  6. DUODOPA [Suspect]
     Active Substance: CARBIDOPA\LEVODOPA
     Dosage: MD: 11.0, CD: 2.8, ED: 1.0
     Route: 050
  7. DUODOPA [Suspect]
     Active Substance: CARBIDOPA\LEVODOPA
     Dosage: MD 12.5, CD 2.4, ED 1
     Route: 050
     Dates: start: 20161017

REACTIONS (53)
  - Tension [Not Recovered/Not Resolved]
  - Emotional distress [Not Recovered/Not Resolved]
  - Decreased appetite [Not Recovered/Not Resolved]
  - Gait disturbance [Not Recovered/Not Resolved]
  - Stoma site discharge [Recovering/Resolving]
  - Stoma site erythema [Recovered/Resolved]
  - Stoma site pain [Not Recovered/Not Resolved]
  - Depression [Not Recovered/Not Resolved]
  - Cataract [Unknown]
  - Hyperphagia [Not Recovered/Not Resolved]
  - Memory impairment [Not Recovered/Not Resolved]
  - Stoma site irritation [Recovered/Resolved]
  - Stoma site erythema [Not Recovered/Not Resolved]
  - On and off phenomenon [Not Recovered/Not Resolved]
  - Device issue [Unknown]
  - Hallucination, visual [Not Recovered/Not Resolved]
  - Fibroma [Recovered/Resolved]
  - Drug resistance [Recovered/Resolved]
  - Abnormal dreams [Recovering/Resolving]
  - Dyskinesia [Not Recovered/Not Resolved]
  - Injection site pain [Recovered/Resolved]
  - Stoma site erythema [Recovering/Resolving]
  - Stoma site infection [Not Recovered/Not Resolved]
  - Bradykinesia [Not Recovered/Not Resolved]
  - Scar [Not Recovered/Not Resolved]
  - Stoma site discharge [Recovered/Resolved]
  - Stoma site discharge [Recovered/Resolved]
  - Haemoglobin decreased [Not Recovered/Not Resolved]
  - Weight decreased [Not Recovered/Not Resolved]
  - Tremor [Not Recovered/Not Resolved]
  - Catheter site infection [Recovered/Resolved]
  - Loss of personal independence in daily activities [Not Recovered/Not Resolved]
  - Hunger [Not Recovered/Not Resolved]
  - Asthenia [Not Recovered/Not Resolved]
  - Faeces hard [Not Recovered/Not Resolved]
  - Stoma site odour [Unknown]
  - Freezing phenomenon [Not Recovered/Not Resolved]
  - Coma [Recovered/Resolved]
  - Muscle rigidity [Not Recovered/Not Resolved]
  - Retinal injury [Unknown]
  - Abdominal discomfort [Not Recovered/Not Resolved]
  - Unevaluable event [Not Recovered/Not Resolved]
  - Listless [Not Recovered/Not Resolved]
  - Poor quality sleep [Not Recovered/Not Resolved]
  - Sluggishness [Not Recovered/Not Resolved]
  - Fatigue [Not Recovered/Not Resolved]
  - Stoma site extravasation [Recovered/Resolved]
  - Stoma site pain [Not Recovered/Not Resolved]
  - Injection site inflammation [Recovered/Resolved]
  - Stoma site infection [Recovered/Resolved]
  - Stoma site discomfort [Unknown]
  - Insomnia [Not Recovered/Not Resolved]
  - Constipation [Unknown]

NARRATIVE: CASE EVENT DATE: 2016
